FAERS Safety Report 11158112 (Version 5)
Quarter: 2016Q1

REPORT INFORMATION
  Report Type: Spontaneous
  Country: CA (occurrence: CA)
  Receive Date: 20150603
  Receipt Date: 20160110
  Transmission Date: 20160525
  Serious: Yes (Other)
  Sender: FDA-Public Use
  Company Number: CA-ROCHE-1587880

PATIENT
  Age: 25 Year
  Sex: Female

DRUGS (6)
  1. XOLAIR [Suspect]
     Active Substance: OMALIZUMAB
     Route: 058
  2. SINGULAIR [Concomitant]
     Active Substance: MONTELUKAST SODIUM
  3. DRIXORAL [Suspect]
     Active Substance: DEXBROMPHENIRAMINE MALEATE\PSEUDOEPHEDRINE SULFATE
     Indication: PRODUCT USED FOR UNKNOWN INDICATION
     Route: 065
  4. SYMBICORT [Concomitant]
     Active Substance: BUDESONIDE\FORMOTEROL FUMARATE DIHYDRATE
  5. XOLAIR [Suspect]
     Active Substance: OMALIZUMAB
     Indication: ASTHMA
     Route: 058
     Dates: start: 20130819
  6. BRICANYL [Concomitant]
     Active Substance: TERBUTALINE SULFATE

REACTIONS (16)
  - Pneumonia [Unknown]
  - Face oedema [Unknown]
  - Hypersensitivity [Unknown]
  - Lip oedema [Unknown]
  - Urticaria [Unknown]
  - Bronchitis [Unknown]
  - Back pain [Unknown]
  - Swelling face [Recovered/Resolved]
  - Stress [Unknown]
  - Palpitations [Unknown]
  - Sinusitis [Unknown]
  - Influenza [Unknown]
  - Erythema [Unknown]
  - Wheezing [Unknown]
  - Hypersensitivity [Recovered/Resolved]
  - Alopecia [Unknown]

NARRATIVE: CASE EVENT DATE: 20130819
